FAERS Safety Report 10169517 (Version 54)
Quarter: 2018Q4

REPORT INFORMATION
  Report Type: Report from Study
  Country: CA (occurrence: CA)
  Receive Date: 20140513
  Receipt Date: 20181026
  Transmission Date: 20190204
  Serious: Yes (Hospitalization, Other)
  Sender: FDA-Public Use
  Company Number: PHHY2012CA054618

PATIENT
  Age: 46 Year
  Sex: Female

DRUGS (15)
  1. SANDOSTATIN [Suspect]
     Active Substance: OCTREOTIDE ACETATE
     Indication: DIARRHOEA
     Dosage: TID (FOR 5 DAYS)
     Route: 058
     Dates: start: 201205, end: 201205
  2. APO-TRAZODONE [Concomitant]
     Active Substance: TRAZODONE HYDROCHLORIDE
     Indication: PRODUCT USED FOR UNKNOWN INDICATION
     Dosage: 50 MG, DAILY AT BEDTIME
     Route: 048
  3. SANDOSTATIN LAR DEPOT [Suspect]
     Active Substance: OCTREOTIDE ACETATE
     Dosage: 30 MG, Q3W (EVERY 3 WEEKS)
     Route: 030
     Dates: start: 20170404
  4. VENTOLIN [Concomitant]
     Active Substance: ALBUTEROL SULFATE
     Indication: PRODUCT USED FOR UNKNOWN INDICATION
     Dosage: PRN (2 PUFFS TID)
     Route: 055
  5. SANDOSTATIN LAR DEPOT [Suspect]
     Active Substance: OCTREOTIDE ACETATE
     Indication: DIARRHOEA
     Dosage: 30 MG, Q3W
     Route: 030
     Dates: start: 20120623
  6. SANDOSTATIN LAR DEPOT [Suspect]
     Active Substance: OCTREOTIDE ACETATE
     Dosage: 30 MG, QMO (EVERY 4 WEEKS)
     Route: 030
     Dates: start: 20140108, end: 20170301
  7. ZOPICLONE [Concomitant]
     Active Substance: ZOPICLONE
     Indication: INSOMNIA
     Route: 065
  8. EMTEC [Concomitant]
     Indication: PAIN
     Dosage: 30 OT, PRN (QID)
     Route: 048
  9. SANDOSTATIN LAR DEPOT [Suspect]
     Active Substance: OCTREOTIDE ACETATE
     Dosage: 30 MG, EVERY 3 WEEKS
     Route: 030
     Dates: start: 20170303
  10. TRAZODONE [Concomitant]
     Active Substance: TRAZODONE HYDROCHLORIDE
     Indication: INSOMNIA
     Dosage: 25 MG, QHS
     Route: 065
  11. POTASSIUM [Concomitant]
     Active Substance: POTASSIUM
     Indication: PRODUCT USED FOR UNKNOWN INDICATION
     Dosage: 100 MG, QD
     Route: 065
  12. PANTOPRAZOLE [Concomitant]
     Active Substance: PANTOPRAZOLE
     Indication: PRODUCT USED FOR UNKNOWN INDICATION
     Dosage: 40 MG, QD
     Route: 065
     Dates: start: 20180120
  13. APO-GABAPENTIN [Concomitant]
     Active Substance: GABAPENTIN
     Indication: PRODUCT USED FOR UNKNOWN INDICATION
     Dosage: 800 MG, TID
     Route: 048
  14. EMTEC [Concomitant]
     Dosage: 1 DF, QID PRN
     Route: 048
  15. APO-TRAZODONE [Concomitant]
     Active Substance: TRAZODONE HYDROCHLORIDE
     Dosage: 50 MG, QD (AT BEDTIME)
     Route: 048

REACTIONS (94)
  - Ascites [Unknown]
  - Intestinal obstruction [Not Recovered/Not Resolved]
  - Road traffic accident [Recovering/Resolving]
  - Diarrhoea [Recovered/Resolved]
  - Blood sodium decreased [Unknown]
  - Chills [Recovering/Resolving]
  - Sleep disorder [Recovering/Resolving]
  - Mass [Recovering/Resolving]
  - Haemorrhage [Recovering/Resolving]
  - Infrequent bowel movements [Unknown]
  - General physical condition abnormal [Unknown]
  - Dizziness [Recovering/Resolving]
  - Weight decreased [Unknown]
  - Bladder cancer [Recovering/Resolving]
  - Fall [Recovering/Resolving]
  - Muscle spasms [Recovering/Resolving]
  - Paraesthesia [Recovering/Resolving]
  - Injection site movement impairment [Recovering/Resolving]
  - Nasopharyngitis [Recovering/Resolving]
  - Arthralgia [Recovering/Resolving]
  - Stress urinary incontinence [Recovering/Resolving]
  - Accident [Recovering/Resolving]
  - Musculoskeletal chest pain [Unknown]
  - Inappropriate schedule of product administration [Recovering/Resolving]
  - Intestinal perforation [Unknown]
  - Renal failure [Unknown]
  - Hot flush [Recovering/Resolving]
  - Erythema [Recovering/Resolving]
  - Radiation injury [Recovering/Resolving]
  - Obstruction [Not Recovered/Not Resolved]
  - Flatulence [Recovering/Resolving]
  - Vomiting [Unknown]
  - Therapeutic response shortened [Recovering/Resolving]
  - Immune system disorder [Unknown]
  - Urinary tract infection bacterial [Recovering/Resolving]
  - Blood glucose increased [Recovering/Resolving]
  - Blood potassium increased [Unknown]
  - Injection site mass [Recovering/Resolving]
  - Injection site pain [Recovering/Resolving]
  - Body temperature increased [Recovering/Resolving]
  - Dysuria [Recovering/Resolving]
  - Injection site hypoaesthesia [Recovering/Resolving]
  - Breast cyst [Unknown]
  - Headache [Recovering/Resolving]
  - Faeces discoloured [Recovering/Resolving]
  - Dyspepsia [Unknown]
  - Sepsis [Recovering/Resolving]
  - Renal impairment [Unknown]
  - Clostridium difficile infection [Unknown]
  - Gastrointestinal disorder [Unknown]
  - Urinary retention [Recovering/Resolving]
  - Compression fracture [Recovering/Resolving]
  - Anal incontinence [Recovering/Resolving]
  - Pain in extremity [Recovering/Resolving]
  - Spinal disorder [Recovering/Resolving]
  - Urinary incontinence [Recovering/Resolving]
  - Swelling [Recovering/Resolving]
  - Fluid retention [Recovering/Resolving]
  - Stress [Unknown]
  - Oedema [Unknown]
  - Diarrhoea haemorrhagic [Recovering/Resolving]
  - Flank pain [Recovering/Resolving]
  - Depressed mood [Unknown]
  - Intra-abdominal pressure increased [Unknown]
  - Product use in unapproved indication [Recovering/Resolving]
  - Nausea [Recovering/Resolving]
  - Diarrhoea [Not Recovered/Not Resolved]
  - Injection site erythema [Recovering/Resolving]
  - Acute kidney injury [Recovering/Resolving]
  - Diverticulum [Unknown]
  - Abdominal pain [Recovering/Resolving]
  - Small intestinal obstruction [Unknown]
  - Blood magnesium decreased [Unknown]
  - Blood creatinine increased [Unknown]
  - Blood pressure increased [Recovering/Resolving]
  - Intervertebral disc protrusion [Recovering/Resolving]
  - Pain [Recovering/Resolving]
  - Discomfort [Unknown]
  - Abdominal distension [Recovering/Resolving]
  - Abdominal infection [Unknown]
  - Cystitis [Recovering/Resolving]
  - Glomerular filtration rate decreased [Unknown]
  - Back pain [Recovering/Resolving]
  - Malaise [Recovering/Resolving]
  - Fatigue [Recovering/Resolving]
  - Cyst [Recovering/Resolving]
  - Peripheral swelling [Recovering/Resolving]
  - Eating disorder [Unknown]
  - Oedema peripheral [Unknown]
  - Needle issue [Unknown]
  - Blood pressure systolic decreased [Unknown]
  - Blood magnesium increased [Unknown]
  - Product prescribing error [Unknown]
  - Injection site discomfort [Recovering/Resolving]

NARRATIVE: CASE EVENT DATE: 201205
